FAERS Safety Report 13726930 (Version 2)
Quarter: 2017Q3

REPORT INFORMATION
  Report Type: Spontaneous
  Country: IE (occurrence: IE)
  Receive Date: 20170707
  Receipt Date: 20170724
  Transmission Date: 20171127
  Serious: Yes (Other)
  Sender: FDA-Public Use
  Company Number: IE-TEVA-782039ACC

PATIENT
  Age: 70 Year
  Sex: Female

DRUGS (5)
  1. ROSUVASTATIN (G) [Concomitant]
     Indication: BLOOD CHOLESTEROL
     Route: 048
  2. TRAMADOL/PARACETAMOL TEVA [Suspect]
     Active Substance: ACETAMINOPHEN\TRAMADOL
     Indication: PAIN
     Dosage: 4 DOSAGE FORMS DAILY;
     Route: 048
     Dates: start: 20170606, end: 20170606
  3. ELTROXIN (GENERIC) [Concomitant]
     Indication: THYROID DISORDER
     Dosage: 100MCG/50MG
     Route: 048
  4. VALSARTAN (GENERIC) [Concomitant]
     Indication: BLOOD PRESSURE MEASUREMENT
     Route: 048
  5. ESOMEPRAZOLE (G) [Concomitant]
     Route: 048

REACTIONS (6)
  - Dizziness [Recovered/Resolved]
  - Urinary incontinence [Recovered/Resolved]
  - Syncope [Recovered/Resolved]
  - Nausea [Recovered/Resolved]
  - Amnesia [Recovered/Resolved]
  - Hyperhidrosis [Recovered/Resolved]

NARRATIVE: CASE EVENT DATE: 20170606
